FAERS Safety Report 16373714 (Version 4)
Quarter: 2019Q4

REPORT INFORMATION
  Report Type: Spontaneous
  Country: US (occurrence: US)
  Receive Date: 20190530
  Receipt Date: 20191015
  Transmission Date: 20200122
  Serious: No
  Sender: FDA-Public Use
  Company Number: US-SA-2019SA147667

PATIENT
  Age: 58 Year
  Sex: Female

DRUGS (1)
  1. AUBAGIO [Suspect]
     Active Substance: TERIFLUNOMIDE
     Indication: MULTIPLE SCLEROSIS
     Dosage: 14 MG, QD
     Route: 048
     Dates: start: 20190413

REACTIONS (8)
  - Sleep disorder [Unknown]
  - Hypoaesthesia [Unknown]
  - Diarrhoea [Unknown]
  - Pain in extremity [Unknown]
  - Nausea [Unknown]
  - Pain [Unknown]
  - Alopecia [Recovered/Resolved]
  - Paraesthesia [Unknown]

NARRATIVE: CASE EVENT DATE: 2019
